FAERS Safety Report 22243158 (Version 2)
Quarter: 2024Q3

REPORT INFORMATION
  Report Type: Spontaneous
  Country: NL (occurrence: NL)
  Receive Date: 20230424
  Receipt Date: 20240826
  Transmission Date: 20241017
  Serious: Yes (Hospitalization)
  Sender: RANBAXY
  Company Number: NL-LRB-00868839

PATIENT
  Sex: Male
  Weight: 85 kg

DRUGS (6)
  1. SUNITINIB [Suspect]
     Active Substance: SUNITINIB
     Indication: Papillary renal cell carcinoma
     Dosage: 50 MILLIGRAM, DAILY, 1X PER DAG 2 STUKS
     Route: 065
     Dates: start: 20230202, end: 20230219
  2. LEVOTHYROXINE TABLET 125UG (NATRIUM) / Brand name not specified [Concomitant]
     Indication: Product used for unknown indication
     Dosage: TABLET, 125 UG (MICROGRAM)
     Route: 065
  3. SOTALOL TABLET  80MG / Brand name not specified [Concomitant]
     Indication: Product used for unknown indication
     Dosage: TABLET, 80 MG (MILLIGRAM)
     Route: 065
  4. AMLODIPINE TABLET   5MG / Brand name not specified [Concomitant]
     Indication: Product used for unknown indication
     Dosage: TABLET, 5 MG (MILLIGRAM)
     Route: 065
  5. PARACETAMOL CAPSULE 500MG / Brand name not specified [Concomitant]
     Indication: Product used for unknown indication
     Dosage: CAPSULE, 500 MG (MILLIGRAM)
     Route: 065
  6. LEVOTHYROXINE TABLET 100UG (ZUUR) / Brand name not specified [Concomitant]
     Indication: Product used for unknown indication
     Dosage: TABLET, 100 UG (MICROGRAM)
     Route: 065

REACTIONS (3)
  - Neutropenia [Recovered/Resolved]
  - Hepatic enzyme increased [Recovering/Resolving]
  - Renal impairment [Recovering/Resolving]
